FAERS Safety Report 5768715-0 (Version None)
Quarter: 2008Q2

REPORT INFORMATION
  Report Type: 
  Country: None (occurrence: None)
  Receive Date: 20080610
  Receipt Date: 20080605
  Transmission Date: 20081010
  Serious: Yes (Other)
  Sender: FDA-Public Use
  Company Number: 2008SP009853

PATIENT
  Sex: Male

DRUGS (1)
  1. BETAMETHASONE SODIUM PHOSPHATE [Suspect]
     Indication: RHINITIS ALLERGIC
     Dosage: 1 MG; QD; PO
     Route: 048
     Dates: start: 19860101, end: 20010101

REACTIONS (2)
  - HAEMORRHAGE [None]
  - MELAENA [None]
